FAERS Safety Report 16912241 (Version 3)
Quarter: 2023Q4

REPORT INFORMATION
  Report Type: Spontaneous
  Country: US (occurrence: US)
  Receive Date: 20191014
  Receipt Date: 20231202
  Transmission Date: 20240110
  Serious: Yes (Other)
  Sender: FDA-Public Use
  Company Number: US-BAYER-2019-184180

PATIENT
  Age: 39 Year
  Sex: Female

DRUGS (4)
  1. MIRENA [Suspect]
     Active Substance: LEVONORGESTREL
     Indication: Contraception
     Dosage: 20 MCG/24HR, CONT
     Route: 015
     Dates: start: 20190912, end: 20191003
  2. MIRENA [Suspect]
     Active Substance: LEVONORGESTREL
     Indication: Heavy menstrual bleeding
  3. MIRENA [Suspect]
     Active Substance: LEVONORGESTREL
     Indication: Contraception
  4. MIRENA [Suspect]
     Active Substance: LEVONORGESTREL
     Indication: Heavy menstrual bleeding

REACTIONS (1)
  - Uterine perforation [None]

NARRATIVE: CASE EVENT DATE: 20191003
